FAERS Safety Report 5962404-5 (Version None)
Quarter: 2008Q4

REPORT INFORMATION
  Report Type: 
  Country: None (occurrence: None)
  Receive Date: 20081121
  Receipt Date: 20081114
  Transmission Date: 20090506
  Serious: Yes (Other)
  Sender: FDA-Public Use
  Company Number: PHEH2008US10273

PATIENT
  Age: 89 Year
  Sex: Female

DRUGS (1)
  1. DIOVAN [Suspect]
     Dosage: 320 MG, UNK
     Dates: start: 19980101

REACTIONS (2)
  - LIVER INJURY [None]
  - RENAL INJURY [None]
